FAERS Safety Report 20443093 (Version 2)
Quarter: 2022Q3

REPORT INFORMATION
  Report Type: Report from Study
  Country: DO (occurrence: DO)
  Receive Date: 20220208
  Receipt Date: 20220930
  Transmission Date: 20221027
  Serious: Yes (Other)
  Sender: FDA-Public Use
  Company Number: DO-002147023-NVSC2021DO248390

PATIENT

DRUGS (3)
  1. DICLOFENAC [Suspect]
     Active Substance: DICLOFENAC
     Indication: Product used for unknown indication
     Dosage: UNK
     Route: 065
  2. ELTROMBOPAG OLAMINE [Suspect]
     Active Substance: ELTROMBOPAG OLAMINE
     Indication: Immune thrombocytopenia
     Dosage: 50 MG, QD
     Route: 048
     Dates: start: 20200520
  3. ELTROMBOPAG OLAMINE [Suspect]
     Active Substance: ELTROMBOPAG OLAMINE
     Dosage: 50 MG, QD (50 MG, QD (DISPERSIBLE TABLET))
     Route: 048
     Dates: start: 20200525

REACTIONS (10)
  - Cellulitis [Unknown]
  - Pain [Unknown]
  - Drug hypersensitivity [Unknown]
  - Thermal burn [Unknown]
  - Blood pressure decreased [Unknown]
  - Arthralgia [Unknown]
  - Back pain [Unknown]
  - Chest pain [Unknown]
  - Fall [Unknown]
  - Bone erosion [Unknown]
